FAERS Safety Report 7011819-5 (Version None)
Quarter: 2010Q3

REPORT INFORMATION
  Report Type: 
  Country: None (occurrence: None)
  Receive Date: 20100923
  Receipt Date: 20090715
  Transmission Date: 20110219
  Serious: No
  Sender: FDA-Public Use
  Company Number: US-WYE-H10180109

PATIENT
  Sex: Female
  Weight: 59.02 kg

DRUGS (5)
  1. PREMARIN [Suspect]
     Indication: VAGINAL INFECTION
     Dosage: PUT SMALL MOUNT  ON FINGER AND APPLIED TO HER VAGINAL AREA AND HEMORRHOIDS
     Dates: start: 20090713, end: 20090715
  2. CLARITIN [Concomitant]
  3. KLONOPIN [Concomitant]
  4. LIPITOR [Concomitant]
  5. ISOPTIN [Concomitant]

REACTIONS (3)
  - BLOOD URINE PRESENT [None]
  - DYSURIA [None]
  - POLLAKIURIA [None]
